FAERS Safety Report 12679719 (Version 1)
Quarter: 2016Q3

REPORT INFORMATION
  Report Type: Spontaneous
  Country: US (occurrence: None)
  Receive Date: 20160823
  Receipt Date: 20160823
  Transmission Date: 20161109
  Serious: Yes (Hospitalization)
  Sender: FDA-Public Use
  Company Number: None

PATIENT
  Age: 67 Year
  Sex: Male
  Weight: 72.7 kg

DRUGS (26)
  1. LAMOTRIGINE. [Concomitant]
     Active Substance: LAMOTRIGINE
  2. QUETIAPINE. [Concomitant]
     Active Substance: QUETIAPINE
  3. DULOXETINE. [Concomitant]
     Active Substance: DULOXETINE
  4. CHOLECALCIFEROL [Concomitant]
     Active Substance: CHOLECALCIFEROL
  5. SITAGLIPTIN [Concomitant]
     Active Substance: SITAGLIPTIN
  6. METHYLPREDNISOLONE DOSE PACK [Concomitant]
  7. PRAMIPEXOLE. [Concomitant]
     Active Substance: PRAMIPEXOLE
  8. CLOPIDOGREL [Concomitant]
     Active Substance: CLOPIDOGREL BISULFATE
  9. TAPENTADOL EXTENDED RELEASE, 100 MG [Suspect]
     Active Substance: TAPENTADOL HYDROCHLORIDE
     Indication: PAIN
     Route: 048
     Dates: start: 20160812, end: 20160821
  10. METFORMIN [Concomitant]
     Active Substance: METFORMIN HYDROCHLORIDE
  11. NEBIVOLOL. [Concomitant]
     Active Substance: NEBIVOLOL
  12. AMLODIPINE [Concomitant]
     Active Substance: AMLODIPINE BESYLATE
  13. DOCUSATE [Concomitant]
     Active Substance: DOCUSATE
  14. INSULIN GLARGINE [Concomitant]
     Active Substance: INSULIN GLARGINE
  15. MEMANTINE XR [Concomitant]
  16. OMEGA-3 FATTY ACIDS [Concomitant]
     Active Substance: OMEGA-3 FATTY ACIDS
  17. TAPENTADOL EXTENDED RELEASE, 50MG [Suspect]
     Active Substance: TAPENTADOL HYDROCHLORIDE
     Indication: PAIN
     Route: 048
     Dates: start: 20160808, end: 20160812
  18. LOSARTAN. [Concomitant]
     Active Substance: LOSARTAN
  19. TAPENTADOL EXTENDED RELEASE, 100 MG [Suspect]
     Active Substance: TAPENTADOL HYDROCHLORIDE
     Indication: RIB FRACTURE
     Route: 048
     Dates: start: 20160812, end: 20160821
  20. PANTOPRAZOLE [Concomitant]
     Active Substance: PANTOPRAZOLE SODIUM
  21. ATORVASTATIN [Concomitant]
     Active Substance: ATORVASTATIN
  22. MULTIVITAMIN [Concomitant]
     Active Substance: VITAMINS
  23. SENNA [Concomitant]
     Active Substance: SENNA LEAF\SENNOSIDES\SENNOSIDES A AND B
  24. TAPENTADOL EXTENDED RELEASE, 50MG [Suspect]
     Active Substance: TAPENTADOL HYDROCHLORIDE
     Indication: RIB FRACTURE
     Route: 048
     Dates: start: 20160808, end: 20160812
  25. LORAZEPAM. [Concomitant]
     Active Substance: LORAZEPAM
  26. ASPIRIN EC [Concomitant]
     Active Substance: ASPIRIN

REACTIONS (1)
  - Status epilepticus [None]

NARRATIVE: CASE EVENT DATE: 20160821
